FAERS Safety Report 7769351-7 (Version None)
Quarter: 2011Q3

REPORT INFORMATION
  Report Type: 
  Country: None (occurrence: None)
  Receive Date: 20110920
  Receipt Date: 20110912
  Transmission Date: 20111222
  Serious: Yes (Hospitalization)
  Sender: FDA-Public Use
  Company Number: CIP11002253

PATIENT
  Age: 60 Year
  Sex: Male

DRUGS (5)
  1. IMODIUM	/00384302/ (LOPERAMIDE HYDROCHLORIDE) [Concomitant]
  2. ASACOL HD [Suspect]
     Indication: CROHN'S DISEASE
     Dosage: 1600 MG 3 TIMES PER DAY, ORAL
     Route: 048
  3. ANTIHYPERTENSIVES [Concomitant]
  4. ASACOL [Suspect]
     Indication: CROHN'S DISEASE
     Dosage: , ORAL
     Route: 048
  5. ALL OTHER THERAPEUTIC PRODUCTS [Concomitant]

REACTIONS (2)
  - SMALL INTESTINAL OBSTRUCTION [None]
  - MEDICATION RESIDUE [None]
